FAERS Safety Report 8602548-2 (Version None)
Quarter: 2012Q3

REPORT INFORMATION
  Report Type: 
  Country: None (occurrence: None)
  Receive Date: 20120817
  Receipt Date: 20120813
  Transmission Date: 20120928
  Serious: Yes (Other)
  Sender: FDA-Public Use
  Company Number: PHHY2012MX071156

PATIENT
  Sex: Female

DRUGS (2)
  1. ZOLEDRONOC ACID [Suspect]
     Indication: OSTEOPOROSIS
     Dosage: 5 MG, YEARLY
     Route: 042
     Dates: start: 20090813
  2. NORFLEX [Concomitant]

REACTIONS (4)
  - JOINT INJURY [None]
  - BONE PAIN [None]
  - FALL [None]
  - ARTHRALGIA [None]
